FAERS Safety Report 6443698-9 (Version None)
Quarter: 2009Q4

REPORT INFORMATION
  Report Type: 
  Country: None (occurrence: None)
  Receive Date: 20091117
  Receipt Date: 20091113
  Transmission Date: 20100525
  Serious: Yes (Hospitalization, Other)
  Sender: FDA-Public Use
  Company Number: US-RB-018541-09

PATIENT
  Age: 36 Year
  Sex: Male

DRUGS (2)
  1. SUBOXONE [Suspect]
     Dosage: DOSING DETAILS NOT PROVIDED
     Route: 065
     Dates: start: 20090101, end: 20091105
  2. SUBOXONE [Suspect]
     Route: 060
     Dates: start: 20090601, end: 20090901

REACTIONS (8)
  - ABNORMAL DREAMS [None]
  - ARTHRALGIA [None]
  - CONSTIPATION [None]
  - GALLBLADDER NECROSIS [None]
  - HYPERHIDROSIS [None]
  - INSOMNIA [None]
  - PAIN [None]
  - POSTOPERATIVE WOUND INFECTION [None]
